FAERS Safety Report 25390732 (Version 1)
Quarter: 2025Q2

REPORT INFORMATION
  Report Type: Spontaneous
  Country: US (occurrence: None)
  Receive Date: 20250603
  Receipt Date: 20250603
  Transmission Date: 20250716
  Serious: Yes (Hospitalization)
  Sender: FDA-CTU
  Company Number: None

PATIENT
  Age: 78 Year
  Sex: Female
  Weight: 52 kg

DRUGS (3)
  1. TECARTUS [Suspect]
     Active Substance: BREXUCABTAGENE AUTOLEUCEL
  2. FLUDARABINE [Suspect]
     Active Substance: FLUDARABINE PHOSPHATE
  3. CYCLOPHOSPHAMIDE [Suspect]
     Active Substance: CYCLOPHOSPHAMIDE

REACTIONS (9)
  - Cytokine release syndrome [None]
  - Serum ferritin increased [None]
  - Confusional state [None]
  - Somnolence [None]
  - Dysphagia [None]
  - Memory impairment [None]
  - Depressed level of consciousness [None]
  - Seizure [None]
  - Neurotoxicity [None]

NARRATIVE: CASE EVENT DATE: 20250422
